FAERS Safety Report 11002731 (Version 1)
Quarter: 2015Q2

REPORT INFORMATION
  Report Type: Report from Study
  Country: JP (occurrence: JP)
  Receive Date: 20150408
  Receipt Date: 20150408
  Transmission Date: 20150821
  Serious: Yes (Other)
  Sender: FDA-Public Use
  Company Number: JP-TEVA-553075USA

PATIENT
  Age: 20 Year
  Sex: Female
  Weight: 39 kg

DRUGS (2)
  1. GALZIN [Suspect]
     Active Substance: ZINC ACETATE
     Indication: HEPATO-LENTICULAR DEGENERATION
     Dosage: 450 MILLIGRAM DAILY;
     Route: 048
     Dates: start: 20080502, end: 20090622
  2. GALZIN [Suspect]
     Active Substance: ZINC ACETATE
     Route: 048
     Dates: start: 20090316, end: 20090630

REACTIONS (2)
  - Granulocytopenia [Unknown]
  - Anaemia [Recovering/Resolving]

NARRATIVE: CASE EVENT DATE: 20090525
